FAERS Safety Report 4928670-X (Version None)
Quarter: 2006Q1

REPORT INFORMATION
  Report Type: 
  Country: None (occurrence: None)
  Receive Date: 20060227
  Receipt Date: 20060227
  Transmission Date: 20060701
  Serious: No
  Sender: FDA-Public Use
  Company Number: None

PATIENT
  Age: 19 Year
  Sex: Male
  Weight: 79.4 kg

DRUGS (3)
  1. LINEZOLID 600MG [Suspect]
     Dosage: 600 MG PO BID
     Route: 048
     Dates: start: 20060217, end: 20060218
  2. VANCOMYCIN [Concomitant]
  3. BICARB [Concomitant]

REACTIONS (4)
  - EYE SWELLING [None]
  - PRURITUS GENERALISED [None]
  - RASH [None]
  - URTICARIA [None]
